FAERS Safety Report 11723651 (Version 1)
Quarter: 2015Q4

REPORT INFORMATION
  Report Type: Spontaneous
  Country: GB (occurrence: GB)
  Receive Date: 20151111
  Receipt Date: 20151111
  Transmission Date: 20160304
  Serious: Yes (Other)
  Sender: FDA-Public Use
  Company Number: GB-TEVA-606597ACC

PATIENT
  Age: 15 Year
  Sex: Male

DRUGS (4)
  1. SALBUTAMOL [Concomitant]
     Active Substance: ALBUTEROL
     Route: 055
  2. CLENIL MODULITE [Concomitant]
     Active Substance: BECLOMETHASONE DIPROPIONATE
     Dosage: 4 DOSAGE FORMS DAILY; 50
     Route: 055
  3. MOMETASONE [Concomitant]
     Active Substance: MOMETASONE
     Route: 045
  4. CETIRIZINE [Suspect]
     Active Substance: CETIRIZINE HYDROCHLORIDE
     Indication: SEASONAL ALLERGY
     Dosage: 10 MILLIGRAM DAILY;
     Route: 048
     Dates: start: 20150701, end: 20150909

REACTIONS (4)
  - Ocular discomfort [Unknown]
  - Dizziness [Recovered/Resolved]
  - Nausea [Unknown]
  - Tunnel vision [Unknown]

NARRATIVE: CASE EVENT DATE: 20150702
